FAERS Safety Report 9314785 (Version 1)
Quarter: 2013Q2

REPORT INFORMATION
  Report Type: Spontaneous
  Country: US (occurrence: US)
  Receive Date: 20130529
  Receipt Date: 20130529
  Transmission Date: 20140414
  Serious: Yes (Hospitalization, Other)
  Sender: FDA-Public Use
  Company Number: US-ELI_LILLY_AND_COMPANY-US201304007662

PATIENT
  Age: 63 Year
  Sex: Female

DRUGS (3)
  1. CYMBALTA [Suspect]
     Indication: ANXIETY
     Dosage: 30 MG, QD
     Route: 065
     Dates: start: 201208, end: 20130511
  2. KLONOPIN [Concomitant]
     Indication: ANXIETY
     Dosage: UNK UNK, BID
     Route: 065
     Dates: start: 1989
  3. DIAZEPAM [Concomitant]
     Indication: ANXIETY
     Dosage: UNK UNK, QD
     Route: 065

REACTIONS (34)
  - Blister [Unknown]
  - Hypertension [Recovered/Resolved]
  - Heart rate increased [Not Recovered/Not Resolved]
  - Weight increased [Not Recovered/Not Resolved]
  - Herpes zoster [Recovered/Resolved]
  - Abdominal distension [Not Recovered/Not Resolved]
  - Rash [Unknown]
  - Night sweats [Recovered/Resolved]
  - Nausea [Not Recovered/Not Resolved]
  - Vomiting [Not Recovered/Not Resolved]
  - Vertigo [Recovering/Resolving]
  - Asthenia [Not Recovered/Not Resolved]
  - Somnolence [Recovered/Resolved]
  - Blood pressure systolic decreased [Not Recovered/Not Resolved]
  - Anxiety [Not Recovered/Not Resolved]
  - Chills [Recovered/Resolved]
  - Diarrhoea [Not Recovered/Not Resolved]
  - Headache [Not Recovered/Not Resolved]
  - Feeling abnormal [Unknown]
  - Pain in extremity [Unknown]
  - Upper respiratory tract infection [Unknown]
  - Cough [Unknown]
  - Pyrexia [Unknown]
  - Heart rate decreased [Unknown]
  - Fall [Unknown]
  - Oral mucosal blistering [Unknown]
  - Rash [Unknown]
  - Swelling face [Unknown]
  - Gastrooesophageal reflux disease [Unknown]
  - Abdominal pain [Unknown]
  - Hot flush [Unknown]
  - Breast swelling [Unknown]
  - Contusion [Unknown]
  - Crying [Unknown]
